FAERS Safety Report 7658848-6 (Version None)
Quarter: 2011Q3

REPORT INFORMATION
  Report Type: 
  Country: None (occurrence: None)
  Receive Date: 20110805
  Receipt Date: 20110802
  Transmission Date: 20111222
  Serious: Yes (Hospitalization, Other)
  Sender: FDA-Public Use
  Company Number: US-SANOFI-AVENTIS-2011SA049613

PATIENT
  Age: 52 Year
  Sex: Female

DRUGS (2)
  1. LOVENOX [Suspect]
     Route: 065
     Dates: start: 20101001
  2. NOVOLOG [Concomitant]

REACTIONS (3)
  - KETOACIDOSIS [None]
  - MENORRHAGIA [None]
  - HAEMATOCHEZIA [None]
